FAERS Safety Report 19979932 (Version 2)
Quarter: 2024Q1

REPORT INFORMATION
  Report Type: Other
  Country: GB (occurrence: GB)
  Receive Date: 20211021
  Receipt Date: 20240326
  Transmission Date: 20240410
  Serious: Yes (Disabling, Other)
  Sender: FDA-Public Use
  Company Number: None

PATIENT

DRUGS (2)
  1. GABAPENTIN [Suspect]
     Active Substance: GABAPENTIN
     Indication: Nerve injury
     Dosage: 900 MILLIGRAM, QD (FULL DOSE)
     Route: 050
     Dates: start: 20200330, end: 20200615
  2. PREGABALIN [Suspect]
     Active Substance: PREGABALIN
     Indication: Nerve injury
     Dosage: 100 MILLIGRAM, QD
     Route: 050
     Dates: start: 20200330, end: 20200615

REACTIONS (12)
  - Skin disorder [Not Recovered/Not Resolved]
  - Hair disorder [Not Recovered/Not Resolved]
  - Body temperature abnormal [Not Recovered/Not Resolved]
  - Inflammation [Not Recovered/Not Resolved]
  - Blindness [Unknown]
  - Photophobia [Unknown]
  - Tunnel vision [Unknown]
  - Vision blurred [Unknown]
  - Visual impairment [Not Recovered/Not Resolved]
  - Diplopia [Unknown]
  - Tremor [Not Recovered/Not Resolved]
  - Amnesia [Not Recovered/Not Resolved]

NARRATIVE: CASE EVENT DATE: 20200330
